FAERS Safety Report 9364316 (Version 1)
Quarter: 2013Q2

REPORT INFORMATION
  Report Type: Spontaneous
  Country: US (occurrence: US)
  Receive Date: 20130624
  Receipt Date: 20130624
  Transmission Date: 20140414
  Serious: No
  Sender: FDA-Public Use
  Company Number: US-MUTUAL PHARMACEUTICAL COMPANY, INC.-MTCD20130030

PATIENT
  Sex: Male

DRUGS (2)
  1. METOCLOPRAMIDE 10 MG GENERIC FOR REGLAN [Suspect]
     Route: 048
     Dates: start: 200701, end: 200908
  2. REGLAN [Suspect]
     Route: 048
     Dates: start: 200701, end: 200908

REACTIONS (2)
  - Myoclonus [Unknown]
  - Tardive dyskinesia [Unknown]
